FAERS Safety Report 5103020-7 (Version None)
Quarter: 2006Q3

REPORT INFORMATION
  Report Type: 
  Country: None (occurrence: None)
  Receive Date: 20060908
  Receipt Date: 20060825
  Transmission Date: 20061208
  Serious: Yes (Hospitalization)
  Sender: FDA-Public Use
  Company Number: GXKR2006JP04716

PATIENT
  Age: 53 Year
  Sex: Female

DRUGS (1)
  1. THIAMAZOLE (NGX)(THIAMAZOLE) [Suspect]
     Indication: BASEDOW'S DISEASE
     Dosage: 30 MG DAILY,

REACTIONS (10)
  - APLASTIC ANAEMIA [None]
  - BONE MARROW FAILURE [None]
  - GRANULOCYTOPENIA [None]
  - LYMPH NODE PAIN [None]
  - LYMPHOCYTE COUNT INCREASED [None]
  - MUCOSAL INFLAMMATION [None]
  - PHARYNGOLARYNGEAL PAIN [None]
  - PLASMACYTOSIS [None]
  - PYREXIA [None]
  - WHITE BLOOD CELL COUNT DECREASED [None]
